FAERS Safety Report 24156518 (Version 1)
Quarter: 2024Q3

REPORT INFORMATION
  Report Type: Spontaneous
  Country: US (occurrence: US)
  Receive Date: 20240731
  Receipt Date: 20240731
  Transmission Date: 20241017
  Serious: Yes (Other)
  Sender: ACCORD
  Company Number: US-Accord-437781

PATIENT
  Age: 70 Year
  Sex: Male
  Weight: 80.74 kg

DRUGS (9)
  1. CLONAZEPAM [Suspect]
     Active Substance: CLONAZEPAM
     Indication: Anxiety
     Dosage: THREE TIMES DAILY
     Route: 048
     Dates: start: 20240713
  2. CLONAZEPAM [Concomitant]
     Active Substance: CLONAZEPAM
     Indication: Anxiety
  3. CLONAZEPAM [Concomitant]
     Active Substance: CLONAZEPAM
     Indication: Anxiety
  4. Cartia [Concomitant]
     Indication: Atrial fibrillation
  5. EVOLOCUMAB [Concomitant]
     Active Substance: EVOLOCUMAB
     Indication: Blood cholesterol
     Dosage: EVERY 3RD WEEK
  6. CLONIDINE [Concomitant]
     Active Substance: CLONIDINE
     Indication: Blood pressure management
     Dosage: TO WORK WITH CLONAZEPAM
  7. CLONAZEPAM [Suspect]
     Active Substance: CLONAZEPAM
     Indication: Anxiety
     Dosage: THREE TIMES DAILY
     Route: 048
     Dates: start: 20240714
  8. CLONIDINE [Concomitant]
     Active Substance: CLONIDINE
     Indication: Atrial fibrillation
     Dosage: TO WORK WITH CLONAZEPAM
  9. CLONAZEPAM [Suspect]
     Active Substance: CLONAZEPAM
     Indication: Anxiety
     Dates: start: 20240719

REACTIONS (12)
  - Atrial fibrillation [Unknown]
  - Hyperhidrosis [Recovered/Resolved]
  - Blindness [Recovered/Resolved]
  - Heart rate increased [Unknown]
  - Seizure [Unknown]
  - Hypoaesthesia [Unknown]
  - Paraesthesia [Unknown]
  - Muscle twitching [Unknown]
  - Mental disorder [Unknown]
  - Anxiety [Unknown]
  - Headache [Unknown]
  - Brain fog [Unknown]

NARRATIVE: CASE EVENT DATE: 20240718
